FAERS Safety Report 24379969 (Version 5)
Quarter: 2025Q2

REPORT INFORMATION
  Report Type: Report from Study
  Country: IL (occurrence: IL)
  Receive Date: 20240930
  Receipt Date: 20250426
  Transmission Date: 20250716
  Serious: Yes (Hospitalization, Other)
  Sender: ABBVIE
  Company Number: IL-ABBVIE-5941239

PATIENT
  Age: 80 Year
  Sex: Female

DRUGS (2)
  1. CARBIDOPA\LEVODOPA [Suspect]
     Active Substance: CARBIDOPA\LEVODOPA
     Indication: Parkinson^s disease
     Route: 050
     Dates: start: 20230816
  2. CARBIDOPA\LEVODOPA [Suspect]
     Active Substance: CARBIDOPA\LEVODOPA
     Route: 050

REACTIONS (16)
  - Loss of consciousness [Unknown]
  - Dehydration [Recovering/Resolving]
  - Loss of consciousness [Recovered/Resolved]
  - Seizure [Unknown]
  - Communication disorder [Unknown]
  - Foaming at mouth [Recovering/Resolving]
  - Confusional state [Not Recovered/Not Resolved]
  - Fall [Unknown]
  - Hallucination [Unknown]
  - Mobility decreased [Unknown]
  - Epilepsy [Not Recovered/Not Resolved]
  - General physical health deterioration [Unknown]
  - Gait inability [Unknown]
  - Urinary incontinence [Unknown]
  - Anal incontinence [Unknown]
  - Speech disorder [Unknown]

NARRATIVE: CASE EVENT DATE: 20240101
